FAERS Safety Report 9716292 (Version 1)
Quarter: 2013Q4

REPORT INFORMATION
  Report Type: Spontaneous
  Country: US (occurrence: None)
  Receive Date: 20131126
  Receipt Date: 20131126
  Transmission Date: 20140711
  Serious: No
  Sender: FDA-Public Use
  Company Number: None

PATIENT
  Age: 46 Year
  Sex: Male
  Weight: 95.9 kg

DRUGS (1)
  1. HYDROMORPHONE [Suspect]
     Indication: PAIN
     Dosage: 2 MG ONCE IV
     Route: 042
     Dates: start: 20131120, end: 20131120

REACTIONS (1)
  - Pruritus [None]
